FAERS Safety Report 21802510 (Version 3)
Quarter: 2023Q4

REPORT INFORMATION
  Report Type: Spontaneous
  Country: CZ (occurrence: CZ)
  Receive Date: 20221231
  Receipt Date: 20231110
  Transmission Date: 20240110
  Serious: Yes (Hospitalization, Other)
  Sender: FDA-Public Use
  Company Number: CZ-EMA-DD-20201110-Gonuguntla_n1-145448

PATIENT
  Age: 86 Year
  Sex: Female

DRUGS (39)
  1. TRAMADOL [Interacting]
     Active Substance: TRAMADOL\TRAMADOL HYDROCHLORIDE
     Indication: Product used for unknown indication
     Dosage: UNK
     Route: 065
  2. AMLODIPINE BESYLATE [Interacting]
     Active Substance: AMLODIPINE BESYLATE
     Indication: Hypertension
     Dosage: 5 MILLIGRAM, ONCE A DAY (1-0-0)
     Route: 048
  3. FOLIC ACID [Interacting]
     Active Substance: FOLIC ACID
     Indication: Product used for unknown indication
     Dosage: 1 DOSAGE FORM, ONCE A DAY (1-0-0 ON MONDAY)
     Route: 048
  4. METOPROLOL SUCCINATE [Interacting]
     Active Substance: METOPROLOL SUCCINATE
     Indication: Hypertension
     Dosage: 25 MILLIGRAM, ONCE A DAY
     Route: 048
  5. CALCIUM\CHOLECALCIFEROL [Interacting]
     Active Substance: CALCIUM\CHOLECALCIFEROL
     Indication: Calcium deficiency
     Dosage: 1 DOSAGE FORM, ONCE A DAY (0-0-1)
     Route: 048
  6. CONTROLOC [Interacting]
     Active Substance: PANTOPRAZOLE SODIUM
     Indication: Nausea
     Dosage: 20 MILLIGRAM, ONCE A DAY (1-0-0)
     Route: 048
  7. MAGNESIUM ASPARTATE\POTASSIUM ASPARTATE [Interacting]
     Active Substance: MAGNESIUM ASPARTATE\POTASSIUM ASPARTATE
     Indication: Product used for unknown indication
     Dosage: 1 DOSAGE FORM, ONCE A DAY (0-1-0)
     Route: 048
  8. MAGNESIUM ASPARTATE\POTASSIUM ASPARTATE [Interacting]
     Active Substance: MAGNESIUM ASPARTATE\POTASSIUM ASPARTATE
     Indication: Product used for unknown indication
     Dosage: UNK UNK, ONCE A DAY
     Route: 065
  9. CORDARONE [Interacting]
     Active Substance: AMIODARONE HYDROCHLORIDE
     Indication: Atrial fibrillation
     Dosage: 200 MILLIGRAM, ONCE A DAY (1-0-0)
     Route: 048
  10. SODIUM CHONDROITIN SULFATE [Interacting]
     Active Substance: SODIUM CHONDROITIN SULFATE
     Indication: Rheumatoid arthritis
     Dosage: 800 MILLIGRAM, ONCE A DAY
     Route: 048
  11. FENTANYL [Interacting]
     Active Substance: FENTANYL\FENTANYL CITRATE
     Indication: Post herpetic neuralgia
     Dosage: 25 MICROGRAM 25 UG/H EVERY 72 HOURS
     Route: 062
     Dates: start: 2015
  12. FENTANYL [Interacting]
     Active Substance: FENTANYL\FENTANYL CITRATE
     Indication: Pain
     Dosage: 25 MICROGRAM/H A 72 HOURS (25 MICROGRAM/H A 72 HOURS)
     Route: 062
     Dates: start: 2015
  13. FENTANYL [Interacting]
     Active Substance: FENTANYL\FENTANYL CITRATE
     Dosage: UNK
     Route: 065
  14. EUTHYROX [Interacting]
     Active Substance: LEVOTHYROXINE SODIUM
     Indication: Autoimmune thyroiditis
     Dosage: 100 MICROGRAM, ONCE A DAY
     Route: 065
  15. EUTHYROX [Interacting]
     Active Substance: LEVOTHYROXINE SODIUM
     Indication: Autoimmune thyroiditis
  16. ELIQUIS [Interacting]
     Active Substance: APIXABAN
     Indication: Anticoagulant therapy
     Dosage: 5 MILLIGRAM, TWO TIMES A DAY ( 1-0-10
     Route: 048
  17. SODIUM PICOSULFATE [Interacting]
     Active Substance: SODIUM PICOSULFATE
     Indication: Constipation
     Dosage: 1 DOSAGE FORM 1 DOSAGE FORM (1DF=10-20 GUTTES)
     Route: 065
  18. SODIUM PICOSULFATE [Interacting]
     Active Substance: SODIUM PICOSULFATE
     Dosage: 1 DOSAGE FORM
     Route: 065
  19. ZOLPIDEM TARTRATE [Interacting]
     Active Substance: ZOLPIDEM TARTRATE
     Indication: Drug abuse
     Dosage: UNK
     Route: 065
  20. IBUPROFEN [Interacting]
     Active Substance: IBUPROFEN
     Indication: Pain
     Dosage: UNK
     Route: 065
  21. METAMIZOLE [Interacting]
     Active Substance: METAMIZOLE
     Indication: Post herpetic neuralgia
     Dosage: 500 MILLIGRAM, ONCE A DAY (1-0-1)
     Route: 048
     Dates: start: 2015
  22. MAGNESIUM ASPARTATE [Interacting]
     Active Substance: MAGNESIUM ASPARTATE
     Indication: Product used for unknown indication
     Dosage: UNK
     Route: 065
  23. METHOTREXATE [Interacting]
     Active Substance: METHOTREXATE
     Indication: Rheumatoid arthritis
     Dosage: 10 MILLIGRAM, EVERY WEEK (1-0-0 (SUNDAY))
     Route: 048
     Dates: start: 2010
  24. METHOTREXATE SODIUM [Interacting]
     Active Substance: METHOTREXATE SODIUM
     Indication: Rheumatoid arthritis
     Dosage: 10 MILLIGRAM, EVERY WEEK
     Route: 065
     Dates: start: 2010
  25. ACETAMINOPHEN\CAFFEINE\PROPYPHENAZONE [Interacting]
     Active Substance: ACETAMINOPHEN\CAFFEINE\PROPYPHENAZONE
     Indication: Hypertension
     Dosage: 500 MILLIGRAM, TWO TIMES A DAY
     Route: 065
  26. NICOFURANOSE [Interacting]
     Active Substance: NICOFURANOSE
     Indication: Encephalopathy
     Dosage: UNK UNK, ONCE A DAY DOSE: 0-1-0
     Route: 048
  27. MELOXICAM [Interacting]
     Active Substance: MELOXICAM
     Indication: Post herpetic neuralgia
     Dosage: 15 MILLIGRAM, EVERY WEEK 1 TBL IF PAIN, APP. 3 TIMES A WEEK
     Route: 048
     Dates: start: 2015
  28. OXAZEPAM [Interacting]
     Active Substance: OXAZEPAM
     Indication: Drug abuse
     Dosage: UNK
     Route: 065
  29. MELOXICAM [Interacting]
     Active Substance: MELOXICAM
     Indication: Pain
     Dosage: 15 MILLIGRAM ( 3 TIMES PER WEEK)
     Route: 048
  30. MELOXICAM [Interacting]
     Active Substance: MELOXICAM
     Dosage: 1 DOSAGE FORM, EVERY WEEK
     Route: 065
     Dates: start: 2015
  31. POTASSIUM ASPARTATE [Interacting]
     Active Substance: POTASSIUM ASPARTATE
     Indication: Product used for unknown indication
     Dosage: UNK
     Route: 065
  32. PANADOL [Interacting]
     Active Substance: ACETAMINOPHEN
     Indication: Pain
     Dosage: 750 MILLIGRAM, ONCE A DAY (1.5 TABLETS 3-4 TIMES A DAY)
     Route: 048
     Dates: start: 2015
  33. PREGABALIN [Concomitant]
     Active Substance: PREGABALIN
     Indication: Post herpetic neuralgia
     Dosage: UNK
     Route: 065
  34. PREDNISONE [Interacting]
     Active Substance: PREDNISONE
     Indication: Steroid therapy
     Dosage: 5 MILLIGRAM, ONCE A DAY ( 1-0-0)
     Route: 048
  35. ROSUVASTATIN CALCIUM [Interacting]
     Active Substance: ROSUVASTATIN CALCIUM
     Indication: Product used for unknown indication
     Dosage: 20 MILLIGRAM, ONCE A DAY ( 0-0-1)
     Route: 048
  36. ZOLPIDEM TARTRATE [Interacting]
     Active Substance: ZOLPIDEM TARTRATE
     Indication: Drug abuse
     Dosage: UNK
     Route: 065
  37. ZOLPIDEM TARTRATE [Interacting]
     Active Substance: ZOLPIDEM TARTRATE
     Dosage: UNK
     Route: 065
  38. HYDROCHLOROTHIAZIDE\TELMISARTAN [Suspect]
     Active Substance: HYDROCHLOROTHIAZIDE\TELMISARTAN
     Indication: Product used for unknown indication
     Dosage: 1 DOSAGE FORM, ONCE A DAY (1-0-0; 12.5 MG/80 MG)
     Route: 048
  39. TELMISARTAN [Interacting]
     Active Substance: TELMISARTAN
     Indication: Hypertension
     Dosage: 1 DOSAGE FORM, ONCE A DAY ( 1-0-0)
     Route: 048

REACTIONS (30)
  - Atrial fibrillation [Recovered/Resolved]
  - Apathy [Recovered/Resolved]
  - Confusional state [Recovered/Resolved]
  - Delirium [Recovered/Resolved]
  - Encephalopathy [Recovering/Resolving]
  - Fall [Recovering/Resolving]
  - Hyponatraemia [Recovered/Resolved]
  - Hypertension [Recovering/Resolving]
  - Hypokalaemia [Recovered/Resolved]
  - Head discomfort [Recovered/Resolved]
  - Immobile [Recovered/Resolved]
  - Liver function test increased [Recovered/Resolved]
  - Loss of personal independence in daily activities [Recovered/Resolved]
  - Listless [Recovering/Resolving]
  - Nausea [Recovered/Resolved]
  - Oxygen saturation decreased [Recovered/Resolved]
  - Urinary retention [Recovered/Resolved]
  - Vertigo [Recovered/Resolved]
  - Anxiety [Recovered/Resolved]
  - Discomfort [Recovered/Resolved]
  - Cognitive disorder [Recovered/Resolved]
  - Drug interaction [Recovered/Resolved]
  - General physical health deterioration [Recovering/Resolving]
  - Dehydration [Recovered/Resolved]
  - Condition aggravated [Recovered/Resolved]
  - Affect lability [Recovered/Resolved]
  - Reduced facial expression [Recovered/Resolved]
  - Mobility decreased [Recovered/Resolved]
  - Medication error [Recovered/Resolved]
  - Incorrect dose administered [Unknown]

NARRATIVE: CASE EVENT DATE: 20180101
